FAERS Safety Report 19464441 (Version 2)
Quarter: 2021Q2

REPORT INFORMATION
  Report Type: Spontaneous
  Country: DE (occurrence: DE)
  Receive Date: 20210626
  Receipt Date: 20210626
  Transmission Date: 20210717
  Serious: Yes (Hospitalization, Other)
  Sender: FDA-Public Use
  Company Number: DE-AUROBINDO-AUR-APL-2021-016617

PATIENT
  Age: 65 Year
  Sex: Female
  Weight: 60 kg

DRUGS (7)
  1. L?THYROXIN [Concomitant]
     Active Substance: LEVOTHYROXINE SODIUM
     Indication: HYPOTHYROIDISM
     Dosage: UNK
     Route: 048
  2. VITAMIN B12 [Concomitant]
     Active Substance: CYANOCOBALAMIN
     Indication: PRODUCT USED FOR UNKNOWN INDICATION
     Dosage: UNK
     Route: 065
  3. NEUREXAN [Concomitant]
     Active Substance: HOMEOPATHICS
     Indication: RESTLESSNESS
     Dosage: 3 DOSAGE FORM, ONCE A DAY
     Route: 048
  4. VALSARTAN. [Concomitant]
     Active Substance: VALSARTAN
     Indication: HYPERTENSION
     Dosage: 80 MILLIGRAM, DAILY
     Route: 048
  5. NEUREXAN [Concomitant]
     Active Substance: HOMEOPATHICS
     Indication: SLEEP DISORDER
  6. DULOXETIN PUREN GASTRO RESISTANT CAPSULES, HARD 30 MG [Suspect]
     Active Substance: DULOXETINE
     Indication: DEPRESSION
     Dosage: 30 MILLIGRAM, ONCE A DAY
     Route: 048
     Dates: start: 202012, end: 20210308
  7. CITALOPRAM [Concomitant]
     Active Substance: CITALOPRAM HYDROBROMIDE
     Indication: PRODUCT USED FOR UNKNOWN INDICATION
     Dosage: 5 GTT DROPS, ONCE A DAY
     Route: 048
     Dates: start: 20210308, end: 20210313

REACTIONS (12)
  - Somnolence [Not Recovered/Not Resolved]
  - Coordination abnormal [Not Recovered/Not Resolved]
  - Tremor [Not Recovered/Not Resolved]
  - Withdrawal syndrome [Not Recovered/Not Resolved]
  - Weight decreased [Unknown]
  - Loss of consciousness [Recovered/Resolved]
  - Dyspnoea [Unknown]
  - Restlessness [Not Recovered/Not Resolved]
  - Cardiac disorder [Not Recovered/Not Resolved]
  - Sleep disorder [Not Recovered/Not Resolved]
  - Dizziness [Not Recovered/Not Resolved]
  - Hyperhidrosis [Recovered/Resolved]

NARRATIVE: CASE EVENT DATE: 20210310
